FAERS Safety Report 4422357-8 (Version None)
Quarter: 2004Q3

REPORT INFORMATION
  Report Type: 
  Country: None (occurrence: None)
  Receive Date: 20040804
  Receipt Date: 20040712
  Transmission Date: 20050211
  Serious: Yes (Hospitalization, Other)
  Sender: FDA-Public Use
  Company Number: US_010973280

PATIENT
  Age: 59 Year
  Sex: Male
  Weight: 95 kg

DRUGS (8)
  1. HUMALOG [Suspect]
     Indication: DIABETES MELLITUS
     Route: 058
  2. HUMALOG [Suspect]
     Indication: DIABETES MELLITUS
     Dosage: 12 U AS NEEDED
     Route: 058
     Dates: start: 20010830
  3. HUMULIN N [Suspect]
     Indication: DIABETES MELLITUS
     Dosage: 32 U DAY
  4. ALBUTEROL [Concomitant]
  5. ATROVENT [Concomitant]
  6. PULMICORT [Concomitant]
  7. ADVAIR DISKUS 100/50 [Concomitant]
  8. NOVOLOG [Concomitant]

REACTIONS (9)
  - ARTERIAL OCCLUSIVE DISEASE [None]
  - BLOOD GLUCOSE INCREASED [None]
  - BODY HEIGHT DECREASED [None]
  - DRUG EFFECT DECREASED [None]
  - INJECTION SITE BURNING [None]
  - INSOMNIA [None]
  - PHARMACEUTICAL PRODUCT COMPLAINT [None]
  - RESPIRATORY DISORDER [None]
  - STENT PLACEMENT [None]
